FAERS Safety Report 6118601-1 (Version None)
Quarter: 2009Q1

REPORT INFORMATION
  Report Type: 
  Country: None (occurrence: None)
  Receive Date: 20090314
  Receipt Date: 20090223
  Transmission Date: 20090719
  Serious: No
  Sender: FDA-Public Use
  Company Number: US-ABBOTT-09P-163-0558819-00

PATIENT
  Sex: Male

DRUGS (3)
  1. HUMIRA [Suspect]
     Indication: CROHN'S DISEASE
     Dates: start: 20090220, end: 20090220
  2. HUMIRA [Suspect]
     Dosage: DAY 2 - ONCE
     Route: 058
     Dates: start: 20090221, end: 20090221
  3. HUMIRA [Suspect]

REACTIONS (2)
  - INJECTION SITE PAIN [None]
  - OEDEMA PERIPHERAL [None]
